FAERS Safety Report 6765415-5 (Version None)
Quarter: 2010Q2

REPORT INFORMATION
  Report Type: 
  Country: None (occurrence: None)
  Receive Date: 20100609
  Receipt Date: 20100604
  Transmission Date: 20101027
  Serious: Yes (Hospitalization, Other)
  Sender: FDA-Public Use
  Company Number: 2010TJ0091FU1

PATIENT
  Age: 39 Year
  Sex: Female
  Weight: 97.5234 kg

DRUGS (13)
  1. EPINEPHRINE [Suspect]
     Indication: LATEX ALLERGY
     Dosage: 1 DOSE ON 3 DIFFERENT DAYS
     Dates: start: 20100101
  2. EPINEPHRINE [Suspect]
     Indication: LATEX ALLERGY
     Dosage: 1 DOSE ON 3 DIFFERENT DAYS
     Dates: start: 20100406
  3. EPINEPHRINE [Suspect]
     Indication: LATEX ALLERGY
     Dosage: 1 DOSE ON 3 DIFFERENT DAYS
     Dates: start: 20100421
  4. SOLU-MEDROL [Suspect]
     Indication: LATEX ALLERGY
     Dates: start: 20100101
  5. SOLU-MEDROL [Suspect]
     Indication: LATEX ALLERGY
     Dates: start: 20100406
  6. SOLU-MEDROL [Suspect]
     Indication: LATEX ALLERGY
     Dates: start: 20100421
  7. BENADRYL [Suspect]
     Indication: LATEX ALLERGY
     Dosage: 50 MG,1 DOSE ON 3 DIFFERENT DAYS,INTRAVENOUS
     Route: 042
     Dates: start: 20100101
  8. BENADRYL [Suspect]
     Indication: LATEX ALLERGY
     Dosage: 50 MG,1 DOSE ON 3 DIFFERENT DAYS,INTRAVENOUS
     Route: 042
     Dates: start: 20100406
  9. BENADRYL [Suspect]
     Indication: LATEX ALLERGY
     Dosage: 50 MG,1 DOSE ON 3 DIFFERENT DAYS,INTRAVENOUS
     Route: 042
     Dates: start: 20100421
  10. TAGAMET [Suspect]
     Indication: LATEX ALLERGY
     Dosage: 400 MG,1 DOSE ON 3 DIFFERENT DAYS,INTRAVENOUS
     Route: 042
     Dates: start: 20100101
  11. TAGAMET [Suspect]
     Indication: LATEX ALLERGY
     Dosage: 400 MG,1 DOSE ON 3 DIFFERENT DAYS,INTRAVENOUS
     Route: 042
     Dates: start: 20100406
  12. TAGAMET [Suspect]
     Indication: LATEX ALLERGY
     Dosage: 400 MG,1 DOSE ON 3 DIFFERENT DAYS,INTRAVENOUS
     Route: 042
     Dates: start: 20100421
  13. TOPAMAX [Concomitant]

REACTIONS (5)
  - BLOOD POTASSIUM DECREASED [None]
  - DISEASE COMPLICATION [None]
  - DYSPNOEA [None]
  - RASH [None]
  - RESPIRATORY DISORDER [None]
